FAERS Safety Report 7518312-1 (Version None)
Quarter: 2011Q2

REPORT INFORMATION
  Report Type: 
  Country: None (occurrence: None)
  Receive Date: 20110602
  Receipt Date: 20110524
  Transmission Date: 20111010
  Serious: Yes (Other)
  Sender: FDA-Public Use
  Company Number: US-PURDUE-USA-2011-0067960

PATIENT
  Age: 63 Year
  Sex: Female
  Weight: 70.295 kg

DRUGS (6)
  1. XANAX [Concomitant]
     Indication: ANXIETY
     Dosage: 1 MG, TID
  2. OMEPRAZOLE [Concomitant]
     Indication: PRODUCT USED FOR UNKNOWN INDICATION
     Dosage: 20 MG, BID
  3. OXYCONTIN [Suspect]
     Indication: PAIN
     Dosage: 80 MG, TID
     Route: 048
     Dates: start: 20100801
  4. DESOXYN [Concomitant]
     Dosage: 5 MG, DAILY
  5. FUROSEMIDE [Concomitant]
     Dosage: 20 MG, DAILY
  6. LYRICA [Concomitant]
     Indication: PAIN
     Dosage: 25 MG, BID

REACTIONS (4)
  - GASTROINTESTINAL PAIN [None]
  - ABDOMINAL DISTENSION [None]
  - CONSTIPATION [None]
  - INTESTINAL OBSTRUCTION [None]
